FAERS Safety Report 10625932 (Version 3)
Quarter: 2015Q1

REPORT INFORMATION
  Report Type: Spontaneous
  Country: ES (occurrence: ES)
  Receive Date: 20141204
  Receipt Date: 20150126
  Transmission Date: 20150720
  Serious: Yes (Other)
  Sender: FDA-Public Use
  Company Number: ES-VERTEX PHARMACEUTICALS-2014-004756

PATIENT
  Age: 61 Year
  Sex: Male

DRUGS (3)
  1. RIBAVIRIN. [Suspect]
     Active Substance: RIBAVIRIN
     Indication: HEPATITIS C
     Dosage: UNK
     Route: 065
  2. INTERFERON NOS [Suspect]
     Active Substance: INTERFERON
     Indication: HEPATITIS C
     Dosage: UNK
     Route: 065
  3. INCIVO [Suspect]
     Active Substance: TELAPREVIR
     Indication: HEPATITIS C
     Dosage: UNK
     Route: 048

REACTIONS (2)
  - Drug ineffective [Unknown]
  - Dermatitis [Recovered/Resolved]
